FAERS Safety Report 7132241-7 (Version None)
Quarter: 2010Q4

REPORT INFORMATION
  Report Type: 
  Country: None (occurrence: None)
  Receive Date: 20101129
  Receipt Date: 20101129
  Transmission Date: 20110411
  Serious: No
  Sender: FDA-Public Use
  Company Number: None

PATIENT
  Sex: Female
  Weight: 72.5755 kg

DRUGS (1)
  1. TERBINAFINE HCL [Suspect]
     Indication: FUNGAL INFECTION
     Dosage: 250 MG A TABLET P/NIGHT TOTAL 40 TABLES
     Dates: start: 20100828, end: 20101009

REACTIONS (3)
  - ABDOMINAL DISCOMFORT [None]
  - AGEUSIA [None]
  - WEIGHT DECREASED [None]
